FAERS Safety Report 8707465 (Version 2)
Quarter: 2013Q2

REPORT INFORMATION
  Report Type: Spontaneous
  Country: US (occurrence: US)
  Receive Date: 20120804
  Receipt Date: 20130521
  Transmission Date: 20140414
  Serious: No
  Sender: FDA-Public Use
  Company Number: US-009507513-1207USA012296

PATIENT
  Sex: 0

DRUGS (6)
  1. SINGULAIR [Suspect]
     Route: 048
  2. DULERA [Suspect]
  3. SPIRIVA [Suspect]
  4. XOPENEX [Suspect]
  5. COMBIVENT [Suspect]
  6. ADVAIR [Suspect]

REACTIONS (1)
  - Wheezing [Unknown]
